FAERS Safety Report 6709363-5 (Version None)
Quarter: 2010Q2

REPORT INFORMATION
  Report Type: 
  Country: None (occurrence: None)
  Receive Date: 20100504
  Receipt Date: 20100421
  Transmission Date: 20101027
  Serious: Yes (Other)
  Sender: FDA-Public Use
  Company Number: PHHY2010US26467

PATIENT
  Sex: Female

DRUGS (19)
  1. DIOVAN [Suspect]
     Dosage: 160 MG
  2. DIOVAN [Suspect]
     Dosage: 320 MG
  3. FUROSEMIDE [Concomitant]
     Dosage: 40 MG, UNK
  4. MINOXIDIL [Concomitant]
     Dosage: 2.5 MG, BID
  5. LIPITOR [Concomitant]
     Dosage: 20 MG, UNK
  6. SYNTHROID [Concomitant]
     Dosage: 88 UG, UNK
  7. XANAX [Concomitant]
     Dosage: 0.25 MG, UNK
  8. ASPIRIN [Concomitant]
  9. ZETIA [Concomitant]
     Dosage: 10 MG, UNK
  10. POTASSIUM [Concomitant]
  11. NITROTAB [Concomitant]
     Dosage: UNK
  12. RANITIDINE [Concomitant]
     Dosage: 150 MG, UNK
  13. TRAZODONE HCL [Concomitant]
     Dosage: 25 MG, UNK
  14. NEXIUM [Concomitant]
     Dosage: 40 MG, UNK
  15. CENTRUM SILVER [Concomitant]
  16. CITRACAL [Concomitant]
  17. VITAMIN D [Concomitant]
     Dosage: 2000 U, QD
  18. CLONIDINE [Concomitant]
     Dosage: UNK
  19. COLACE [Concomitant]
     Dosage: UNK

REACTIONS (3)
  - ATRIOVENTRICULAR BLOCK [None]
  - BLOOD PRESSURE ABNORMAL [None]
  - BLOOD PRESSURE FLUCTUATION [None]
